FAERS Safety Report 19264499 (Version 1)
Quarter: 2021Q2

REPORT INFORMATION
  Report Type: Spontaneous
  Country: US (occurrence: US)
  Receive Date: 20210517
  Receipt Date: 20210517
  Transmission Date: 20210717
  Serious: Yes (Hospitalization, Disabling, Other)
  Sender: FDA-Public Use
  Company Number: None

PATIENT
  Age: 77 Year
  Sex: Female
  Weight: 45.81 kg

DRUGS (13)
  1. SIMVASTATIN. [Concomitant]
     Active Substance: SIMVASTATIN
  2. PANTOPRAZOLE [Concomitant]
     Active Substance: PANTOPRAZOLE
  3. RECLAST [Suspect]
     Active Substance: ZOLEDRONIC ACID
     Indication: BONE DENSITY ABNORMAL
  4. CARVEDILO [Concomitant]
     Active Substance: CARVEDILOL
  5. PAXIL [Concomitant]
     Active Substance: PAROXETINE HYDROCHLORIDE
  6. CLONAZEPAM. [Concomitant]
     Active Substance: CLONAZEPAM
  7. ETHAMBUTOL [Concomitant]
     Active Substance: ETHAMBUTOL HYDROCHLORIDE
  8. AZITHROMYCIN ANHYDROUS. [Concomitant]
     Active Substance: AZITHROMYCIN ANHYDROUS
  9. BIOTIN [Concomitant]
     Active Substance: BIOTIN
  10. FLAXSEED [Concomitant]
     Active Substance: FLAX SEED
  11. LISINOPRIL. [Concomitant]
     Active Substance: LISINOPRIL
  12. VITAMIN D3 (VITAFUSION) [Concomitant]
  13. ZYRTEC [Concomitant]
     Active Substance: CETIRIZINE HYDROCHLORIDE

REACTIONS (9)
  - Nausea [None]
  - Infusion related reaction [None]
  - Weight decreased [None]
  - Dizziness [None]
  - Loss of consciousness [None]
  - Decreased appetite [None]
  - Muscle spasms [None]
  - Lethargy [None]
  - Vomiting [None]

NARRATIVE: CASE EVENT DATE: 20210315
